FAERS Safety Report 9153949 (Version 1)
Quarter: 2013Q1

REPORT INFORMATION
  Report Type: Spontaneous
  Country: US (occurrence: US)
  Receive Date: 20130311
  Receipt Date: 20130311
  Transmission Date: 20140127
  Serious: Yes (Other)
  Sender: FDA-Public Use
  Company Number: US-JNJFOC-20130303573

PATIENT
  Age: 65 Year
  Sex: Male

DRUGS (4)
  1. TRAMADOL HYDROCHLORIDE [Suspect]
     Indication: PAIN
     Route: 065
  2. HYDROCODONE [Suspect]
     Indication: PAIN
     Route: 065
  3. MORPHINE [Suspect]
     Indication: PAIN
     Route: 065
  4. KETOROLAC [Suspect]
     Indication: PAIN
     Route: 042

REACTIONS (3)
  - Hyponatraemia [Recovered/Resolved]
  - Confusional state [Recovered/Resolved]
  - Agitation [Recovered/Resolved]
